FAERS Safety Report 5314097-8 (Version None)
Quarter: 2007Q2

REPORT INFORMATION
  Report Type: 
  Country: None (occurrence: None)
  Receive Date: 20070501
  Receipt Date: 20070419
  Transmission Date: 20071010
  Serious: Yes (Other)
  Sender: FDA-Public Use
  Company Number: US-PFIZER INC-2007032875

PATIENT
  Sex: Female
  Weight: 59.1 kg

DRUGS (3)
  1. CHANTIX [Suspect]
     Indication: SMOKING CESSATION THERAPY
  2. SPIRIVA [Concomitant]
  3. LORTAB [Concomitant]

REACTIONS (6)
  - BEDRIDDEN [None]
  - FAECES DISCOLOURED [None]
  - NAUSEA [None]
  - PRODUCTIVE COUGH [None]
  - TREMOR [None]
  - VOMITING [None]
